FAERS Safety Report 18645049 (Version 5)
Quarter: 2021Q3

REPORT INFORMATION
  Report Type: Spontaneous
  Country: US (occurrence: US)
  Receive Date: 20201221
  Receipt Date: 20210929
  Transmission Date: 20211014
  Serious: Yes (Other)
  Sender: FDA-Public Use
  Company Number: US-PFIZER INC-2020501132

PATIENT
  Age: 78 Year
  Sex: Female
  Weight: 117.93 kg

DRUGS (3)
  1. PRISTIQ EXTENDED?RELEASE [Suspect]
     Active Substance: DESVENLAFAXINE SUCCINATE
     Indication: DEPRESSION
     Dosage: 50MG ONCE DAILY
  2. PRISTIQ EXTENDED?RELEASE [Suspect]
     Active Substance: DESVENLAFAXINE SUCCINATE
     Dosage: 50MG ONCE DAILY
     Dates: start: 20201204
  3. MIRTAZAPINE. [Concomitant]
     Active Substance: MIRTAZAPINE
     Indication: DEPRESSION
     Dosage: 10 MG, DAILY

REACTIONS (3)
  - Body height decreased [Unknown]
  - Therapeutic product effect incomplete [Unknown]
  - Cataract [Unknown]
